FAERS Safety Report 14317525 (Version 1)
Quarter: 2017Q4

REPORT INFORMATION
  Report Type: Report from Study
  Country: None (occurrence: KR)
  Receive Date: 20171222
  Receipt Date: 20171222
  Transmission Date: 20180321
  Serious: Yes (Other)
  Sender: FDA-Public Use
  Company Number: KR-ABBVIE-17K-090-2201200-00

PATIENT

DRUGS (1)
  1. HUMIRA [Suspect]
     Active Substance: ADALIMUMAB
     Indication: RHEUMATOID ARTHRITIS
     Route: 058

REACTIONS (100)
  - Chronic gastritis [Not Recovered/Not Resolved]
  - Osteoporotic fracture [Recovered/Resolved]
  - Hepatic steatosis [Not Recovered/Not Resolved]
  - Herpes zoster [Recovered/Resolved]
  - Transaminases increased [Recovered/Resolved]
  - Benign breast neoplasm [Not Recovered/Not Resolved]
  - Uterine polyp [Recovered/Resolved]
  - Menstruation irregular [Unknown]
  - Urticaria [Recovered/Resolved]
  - Hypertension [Recovered/Resolved]
  - Hip arthroplasty [Recovered/Resolved]
  - Irritable bowel syndrome [Recovered/Resolved]
  - Lumbar spinal stenosis [Not Recovered/Not Resolved]
  - Osteoporosis [Not Recovered/Not Resolved]
  - Facet joint syndrome [Not Recovered/Not Resolved]
  - Rotator cuff syndrome [Recovered/Resolved]
  - Foot deformity [Recovered/Resolved]
  - Tinnitus [Not Recovered/Not Resolved]
  - Dry eye [Not Recovered/Not Resolved]
  - Gastrooesophageal reflux disease [Not Recovered/Not Resolved]
  - Dry mouth [Not Recovered/Not Resolved]
  - Azotaemia [Recovered/Resolved]
  - Upper respiratory tract infection [Recovered/Resolved]
  - Dermal cyst [Recovered/Resolved]
  - Bursa removal [Recovered/Resolved]
  - Diarrhoea [Unknown]
  - Cholelithiasis [Unknown]
  - Dyspnoea [Recovered/Resolved]
  - Synovectomy [Recovered/Resolved]
  - Tendon rupture [Recovered/Resolved]
  - Sinusitis [Unknown]
  - Crohn^s disease [Not Recovered/Not Resolved]
  - Tuberculosis [Not Recovered/Not Resolved]
  - Depression [Not Recovered/Not Resolved]
  - Fibrocystic breast disease [Not Recovered/Not Resolved]
  - Skin papilloma [Not Recovered/Not Resolved]
  - Skin papilloma [Unknown]
  - Anaemia [Unknown]
  - Neoplasm malignant [Not Recovered/Not Resolved]
  - Keratitis [Recovered/Resolved]
  - Dry eye [Recovered/Resolved]
  - Injection site reaction [Recovered/Resolved]
  - Infection [Recovered/Resolved]
  - Transaminases increased [Not Recovered/Not Resolved]
  - Back pain [Not Recovered/Not Resolved]
  - Arthralgia [Not Recovered/Not Resolved]
  - Uterine leiomyoma [Not Recovered/Not Resolved]
  - Chronic kidney disease [Not Recovered/Not Resolved]
  - Bronchiectasis [Not Recovered/Not Resolved]
  - Nerve block [Not Recovered/Not Resolved]
  - Epidural injection [Not Recovered/Not Resolved]
  - Hypertension [Not Recovered/Not Resolved]
  - Diarrhoea [Recovered/Resolved]
  - Interstitial lung disease [Not Recovered/Not Resolved]
  - Conjunctivochalasis [Recovered/Resolved]
  - Intracranial aneurysm [Not Recovered/Not Resolved]
  - Anaemia [Recovered/Resolved]
  - Dyspepsia [Not Recovered/Not Resolved]
  - Pruritus generalised [Recovered/Resolved]
  - Spinal column stenosis [Recovered/Resolved]
  - Joint dislocation [Recovered/Resolved]
  - Diabetes mellitus [Not Recovered/Not Resolved]
  - Myofascial pain syndrome [Recovered/Resolved]
  - Dermatitis contact [Recovered/Resolved]
  - Knee arthroplasty [Recovered/Resolved with Sequelae]
  - Pulmonary embolism [Recovered/Resolved]
  - Peptic ulcer [Unknown]
  - Spinal compression fracture [Not Recovered/Not Resolved]
  - Synovial rupture [Recovered/Resolved]
  - Vertigo positional [Recovered/Resolved]
  - Cerebrovascular accident [Recovered/Resolved]
  - Chest discomfort [Recovered/Resolved]
  - Cholelithiasis [Not Recovered/Not Resolved]
  - Hypertonic bladder [Recovered/Resolved]
  - Chronic obstructive pulmonary disease [Recovered/Resolved]
  - Arthroscopic surgery [Recovered/Resolved]
  - Ovarian cyst [Recovered/Resolved]
  - Gastritis [Not Recovered/Not Resolved]
  - Scoliosis [Not Recovered/Not Resolved]
  - Dermal cyst [Not Recovered/Not Resolved]
  - Anaemia [Not Recovered/Not Resolved]
  - Hepatic steatosis [Recovered/Resolved]
  - White matter lesion [Not Recovered/Not Resolved]
  - Hyperlipidaemia [Not Recovered/Not Resolved]
  - Wrist fracture [Recovered/Resolved]
  - Headache [Recovered/Resolved]
  - End stage renal disease [Unknown]
  - Bronchitis [Not Recovered/Not Resolved]
  - Acute kidney injury [Recovered/Resolved]
  - Foot deformity [Not Recovered/Not Resolved]
  - Cytopenia [Recovered/Resolved]
  - Cardiac failure congestive [Recovered/Resolved]
  - Gastrooesophageal reflux disease [Recovered/Resolved]
  - Atypical mycobacterial infection [Unknown]
  - Bacterial infection [Not Recovered/Not Resolved]
  - Hyperlipidaemia [Unknown]
  - Headache [Not Recovered/Not Resolved]
  - Migraine [Recovered/Resolved]
  - Upper respiratory tract infection [Not Recovered/Not Resolved]
  - Shoulder arthroplasty [Recovered/Resolved]
